FAERS Safety Report 24026274 (Version 4)
Quarter: 2024Q3

REPORT INFORMATION
  Report Type: Report from Study
  Country: RO (occurrence: RO)
  Receive Date: 20240628
  Receipt Date: 20240710
  Transmission Date: 20241017
  Serious: No
  Sender: ROCHE
  Company Number: RO-ROCHE-3549918

PATIENT
  Age: 74 Year
  Sex: Female

DRUGS (1)
  1. PHESGO [Suspect]
     Active Substance: HYALURONIDASE-ZZXF\PERTUZUMAB\TRASTUZUMAB
     Indication: Breast cancer
     Dosage: PHESGO 600MG/600MG SOL.INJ  1FLAC 10ML
     Route: 050

REACTIONS (8)
  - Movement disorder [Unknown]
  - Arthralgia [Unknown]
  - Bone disorder [Unknown]
  - Condition aggravated [Unknown]
  - Abdominal discomfort [Unknown]
  - Stomatitis [Unknown]
  - Immune system disorder [Unknown]
  - Scab [Unknown]
